FAERS Safety Report 19425840 (Version 3)
Quarter: 2021Q3

REPORT INFORMATION
  Report Type: Spontaneous
  Country: US (occurrence: US)
  Receive Date: 20210616
  Receipt Date: 20210909
  Transmission Date: 20211014
  Serious: Yes (Other)
  Sender: FDA-Public Use
  Company Number: US-TAKEDA-2021TUS036310

PATIENT
  Age: 60 Year
  Sex: Female
  Weight: 62 kg

DRUGS (16)
  1. GATTEX [Suspect]
     Active Substance: TEDUGLUTIDE\WATER
     Indication: SHORT-BOWEL SYNDROME
     Dosage: 2.7 MILLIGRAM, QD
     Route: 058
     Dates: start: 20170528
  2. GATTEX [Suspect]
     Active Substance: TEDUGLUTIDE\WATER
     Indication: SHORT-BOWEL SYNDROME
     Dosage: 2.7 MILLIGRAM, QD
     Route: 058
     Dates: start: 20170528
  3. GATTEX [Suspect]
     Active Substance: TEDUGLUTIDE\WATER
     Dosage: 2.7 MILLIGRAM, QD
     Route: 065
     Dates: start: 201706
  4. MOBIC [Concomitant]
     Active Substance: MELOXICAM
     Dosage: 7.5 MILLIGRAM, QD (PRN)
     Route: 065
     Dates: start: 20210408
  5. QUESTRAN [Concomitant]
     Active Substance: CHOLESTYRAMINE
     Dosage: 4 GRAM, QD (AT BEDTIME)
     Route: 065
     Dates: start: 20210422
  6. LOMOTIL [Concomitant]
     Active Substance: ATROPINE SULFATE\DIPHENOXYLATE HYDROCHLORIDE
     Dosage: 5 MILLIGRAM, AC AND HS
     Route: 065
  7. GATTEX [Suspect]
     Active Substance: TEDUGLUTIDE\WATER
     Indication: SHORT-BOWEL SYNDROME
     Dosage: 2.7 MILLIGRAM, QD
     Route: 058
     Dates: start: 20170528
  8. GATTEX [Suspect]
     Active Substance: TEDUGLUTIDE\WATER
     Dosage: 2.7 MILLIGRAM, QD
     Route: 065
     Dates: start: 201706
  9. GATTEX [Suspect]
     Active Substance: TEDUGLUTIDE\WATER
     Dosage: 2.7 MILLIGRAM, QD
     Route: 065
     Dates: start: 201706
  10. NEURONTIN [Concomitant]
     Active Substance: GABAPENTIN
     Dosage: 300 MILLIGRAM, QD (BEDTIME)
     Route: 065
     Dates: start: 20210519
  11. IMODIUM [Concomitant]
     Active Substance: LOPERAMIDE HYDROCHLORIDE
     Dosage: 4 MILLIGRAM, QD
     Route: 065
     Dates: start: 2012
  12. ATENOLOL. [Concomitant]
     Active Substance: ATENOLOL
     Dosage: 50 MILLIGRAM, QD
     Route: 065
  13. QUESTRAN [Concomitant]
     Active Substance: CHOLESTYRAMINE
     Dosage: 2 MILLIGRAM, QD (BEDTIME)
     Route: 065
  14. IMODIUM [Concomitant]
     Active Substance: LOPERAMIDE HYDROCHLORIDE
     Dosage: 4 MILLIGRAM, AC AND HS (BEFORE MEALS AND BEDTIME)
     Route: 065
     Dates: start: 2012
  15. GATTEX [Suspect]
     Active Substance: TEDUGLUTIDE\WATER
     Indication: SHORT-BOWEL SYNDROME
     Dosage: 2.7 MILLIGRAM, QD
     Route: 058
     Dates: start: 20170528
  16. GATTEX [Suspect]
     Active Substance: TEDUGLUTIDE\WATER
     Dosage: 2.7 MILLIGRAM, QD
     Route: 065
     Dates: start: 201706

REACTIONS (1)
  - Neuroendocrine tumour [Recovered/Resolved]

NARRATIVE: CASE EVENT DATE: 20210512
